FAERS Safety Report 19381978 (Version 2)
Quarter: 2021Q2

REPORT INFORMATION
  Report Type: Spontaneous
  Country: US (occurrence: US)
  Receive Date: 20210607
  Receipt Date: 20210609
  Transmission Date: 20210717
  Serious: No
  Sender: FDA-Public Use
  Company Number: US-TEVA-2021-US-1913999

PATIENT
  Sex: Female

DRUGS (1)
  1. AJOVY [Suspect]
     Active Substance: FREMANEZUMAB-VFRM
     Dosage: 225MG IN 1.5ML
     Route: 065

REACTIONS (4)
  - Injection site extravasation [Unknown]
  - Adverse event [Unknown]
  - Device malfunction [Unknown]
  - Incorrect dose administered [Unknown]
